FAERS Safety Report 7336618-6 (Version None)
Quarter: 2011Q1

REPORT INFORMATION
  Report Type: 
  Country: None (occurrence: None)
  Receive Date: 20110307
  Receipt Date: 20110303
  Transmission Date: 20110831
  Serious: Yes (Hospitalization)
  Sender: FDA-Public Use
  Company Number: US-BRISTOL-MYERS SQUIBB COMPANY-15549892

PATIENT
  Age: 79 Year
  Sex: Female

DRUGS (18)
  1. FOLIC ACID [Concomitant]
  2. LOMOTIL [Concomitant]
  3. TYLENOL W/ CODEINE [Concomitant]
  4. MECLIZINE [Concomitant]
  5. PREDNISONE [Suspect]
  6. OXYBUTYNIN [Concomitant]
  7. GLIPIZIDE [Concomitant]
  8. SPIRIVA [Concomitant]
  9. METHOTREXATE [Suspect]
  10. DIGOXIN [Concomitant]
  11. FLEXERIL [Concomitant]
  12. AGGRENOX [Concomitant]
  13. LEVOTHYROXINE [Concomitant]
  14. FUROSEMIDE [Concomitant]
  15. PACERONE [Concomitant]
  16. TEMAZEPAM [Concomitant]
  17. AMITRIPTYLINE [Concomitant]
  18. ORENCIA [Suspect]
     Indication: RHEUMATOID ARTHRITIS
     Dosage: LAST DOSE ON 02DEC2010
     Route: 042
     Dates: start: 20090730, end: 20101202

REACTIONS (1)
  - LUNG NEOPLASM MALIGNANT [None]
